FAERS Safety Report 23669543 (Version 1)
Quarter: 2024Q1

REPORT INFORMATION
  Report Type: Spontaneous
  Country: US (occurrence: None)
  Receive Date: 20240325
  Receipt Date: 20240325
  Transmission Date: 20240410
  Serious: Yes (Life-Threatening, Hospitalization)
  Sender: FDA-Public Use
  Company Number: 2024A071642

PATIENT
  Age: 76 Year
  Sex: Male
  Weight: 76.1 kg

DRUGS (10)
  1. CRESTOR [Suspect]
     Active Substance: ROSUVASTATIN CALCIUM
     Route: 048
     Dates: start: 20220505
  2. VUDALIMAB [Suspect]
     Active Substance: VUDALIMAB
     Indication: Metastases to prostate
     Route: 042
     Dates: start: 20231019, end: 20231019
  3. CABAZITAXEL [Suspect]
     Active Substance: CABAZITAXEL
     Indication: Metastases to prostate
     Route: 042
     Dates: start: 20231019, end: 20231019
  4. CARBOPLATIN [Suspect]
     Active Substance: CARBOPLATIN
     Indication: Metastases to prostate
     Route: 042
     Dates: start: 20231019
  5. ATIVAN [Concomitant]
     Active Substance: LORAZEPAM
     Dates: start: 20231019
  6. CYMBALTA [Concomitant]
     Active Substance: DULOXETINE HYDROCHLORIDE
     Dates: start: 20230901
  7. TEMOVATE [Concomitant]
     Active Substance: CLOBETASOL PROPIONATE
     Dates: start: 20231110
  8. VIBRAMYCIN [Concomitant]
     Active Substance: DOXYCYCLINE
     Dates: start: 20240112
  9. K DUR [Concomitant]
     Dates: start: 20230112, end: 20230119
  10. COMPAZINE [Concomitant]
     Active Substance: PROCHLORPERAZINE MALEATE

REACTIONS (11)
  - Hypokalaemia [Not Recovered/Not Resolved]
  - Fall [Unknown]
  - Asthenia [Unknown]
  - Diarrhoea [Not Recovered/Not Resolved]
  - White blood cell count decreased [Not Recovered/Not Resolved]
  - Dermatitis acneiform [Unknown]
  - Rash pruritic [Unknown]
  - Alanine aminotransferase increased [Unknown]
  - Abscess limb [Unknown]
  - Anaemia [Unknown]
  - Aspartate aminotransferase increased [Unknown]

NARRATIVE: CASE EVENT DATE: 20231215
